FAERS Safety Report 13273655 (Version 1)
Quarter: 2017Q1

REPORT INFORMATION
  Report Type: Spontaneous
  Country: HR (occurrence: HR)
  Receive Date: 20170227
  Receipt Date: 20170227
  Transmission Date: 20170428
  Serious: Yes (Other)
  Sender: FDA-Public Use
  Company Number: HR-TEVA-741554ACC

PATIENT
  Age: 42 Year
  Sex: Female
  Weight: 55 kg

DRUGS (1)
  1. GLATIRAMER ACETATE. [Suspect]
     Active Substance: GLATIRAMER ACETATE
     Indication: MULTIPLE SCLEROSIS
     Route: 058
     Dates: start: 20160501

REACTIONS (4)
  - Choking [Unknown]
  - Injection site erythema [Not Recovered/Not Resolved]
  - Skin induration [Unknown]
  - Suffocation feeling [Unknown]

NARRATIVE: CASE EVENT DATE: 201606
